FAERS Safety Report 6230936-0 (Version None)
Quarter: 2009Q2

REPORT INFORMATION
  Report Type: 
  Country: None (occurrence: None)
  Receive Date: 20090616
  Receipt Date: 20090611
  Transmission Date: 20091009
  Serious: No
  Sender: FDA-Public Use
  Company Number: US-B.I. PHARMACEUTICALS,INC./RIDGEFIELD-2009-BP-05612BP

PATIENT
  Sex: Female
  Weight: 51.71 kg

DRUGS (13)
  1. SPIRIVA [Suspect]
     Indication: CHRONIC OBSTRUCTIVE PULMONARY DISEASE
     Dosage: 18MCG
     Route: 055
     Dates: start: 20070101, end: 20090503
  2. SPIRIVA [Suspect]
     Indication: EMPHYSEMA
  3. SPIRIVA [Suspect]
     Indication: DYSPNOEA
  4. FLONASE [Concomitant]
     Dosage: 100MCG
     Route: 045
  5. SYMBICORT [Concomitant]
  6. LASIX [Concomitant]
  7. ALDACTONE [Concomitant]
  8. CLARINEX [Concomitant]
  9. CENTRUM A-Z [Concomitant]
  10. CALCIUM SUPPLEMENT [Concomitant]
  11. COMBIVENT [Concomitant]
  12. BONIVA [Concomitant]
  13. COUMADIN [Concomitant]

REACTIONS (1)
  - VISION BLURRED [None]
